FAERS Safety Report 8366927-3 (Version None)
Quarter: 2012Q2

REPORT INFORMATION
  Report Type: 
  Country: None (occurrence: None)
  Receive Date: 20120517
  Receipt Date: 20120511
  Transmission Date: 20120825
  Serious: Yes (Hospitalization)
  Sender: FDA-Public Use
  Company Number: US-BAYER-2011-030137

PATIENT
  Age: 40 Year
  Sex: Female
  Weight: 72.562 kg

DRUGS (8)
  1. IBUPROFEN (ADVIL) [Concomitant]
  2. AZITHROMYCIN [Concomitant]
     Dosage: 500 MG, UNK
     Route: 048
     Dates: start: 20090109
  3. KETOROLAC TROMETHAMINE [Concomitant]
     Dosage: 15 MG, UNK
     Route: 042
     Dates: start: 20090109
  4. NAPROXEN (ALEVE) [Concomitant]
  5. MORPHINE [Concomitant]
     Dosage: 8 MG, UNK
     Route: 042
     Dates: start: 20090109
  6. YAZ [Suspect]
     Indication: PREMENSTRUAL SYNDROME
     Dosage: UNK
     Dates: start: 20080101, end: 20090101
  7. SODIUM CHLORIDE [Concomitant]
     Dosage: 2000 ML, UNK
     Route: 042
     Dates: start: 20090109
  8. ONDANSETRON [Concomitant]
     Dosage: 4 MG, UNK
     Route: 042
     Dates: start: 20090109

REACTIONS (7)
  - HYSTERECTOMY [None]
  - PULMONARY EMBOLISM [None]
  - PSYCHOLOGICAL TRAUMA [None]
  - INJURY [None]
  - PAIN [None]
  - ANXIETY [None]
  - EMOTIONAL DISTRESS [None]
